FAERS Safety Report 7345722-8 (Version None)
Quarter: 2011Q1

REPORT INFORMATION
  Report Type: 
  Country: None (occurrence: None)
  Receive Date: 20110310
  Receipt Date: 20110228
  Transmission Date: 20110831
  Serious: Yes (Other)
  Sender: FDA-Public Use
  Company Number: US-MYLANLABS-2011S1003956

PATIENT
  Age: 39 Year
  Sex: Male

DRUGS (2)
  1. PHENYTOIN SODIUM CAP [Suspect]
     Route: 048
  2. PHENYTOIN SODIUM CAP [Suspect]
     Indication: CONVULSION
     Route: 048
     Dates: end: 20110201

REACTIONS (3)
  - CONVULSION [None]
  - ANTICONVULSANT DRUG LEVEL BELOW THERAPEUTIC [None]
  - DRUG EFFECT DECREASED [None]
